FAERS Safety Report 8290410 (Version 2)
Quarter: 2013Q2

REPORT INFORMATION
  Report Type: Spontaneous
  Country: US (occurrence: None)
  Receive Date: 20111122
  Receipt Date: 20120426
  Transmission Date: 20140414
  Serious: Yes (Other)
  Sender: FDA-Public Use
  Company Number: PHEH2011US01681

PATIENT
  Age: 34 Year
  Sex: Female

DRUGS (1)
  1. GILENYA [Suspect]
     Indication: MULTIPLE SCLEROSIS
     Dosage: 0.5 MG, QD,ORAL
     Route: 048

REACTIONS (5)
  - FEELING ABNORMAL [None]
  - FEELING DRUNK [None]
  - ABDOMINAL DISCOMFORT [None]
  - INSOMNIA [None]
  - Fatigue [None]
